FAERS Safety Report 23830304 (Version 1)
Quarter: 2024Q2

REPORT INFORMATION
  Report Type: Spontaneous
  Country: US (occurrence: None)
  Receive Date: 20240507
  Receipt Date: 20240507
  Transmission Date: 20240716
  Serious: No
  Sender: FDA-Public Use
  Company Number: None

PATIENT
  Age: 79 Year

DRUGS (1)
  1. AMBRISENTAN [Suspect]
     Active Substance: AMBRISENTAN
     Dosage: FREQUENCY : DAILY;?
     Route: 048
     Dates: start: 20190927

REACTIONS (5)
  - Chest pain [None]
  - Peripheral swelling [None]
  - Abdominal pain upper [None]
  - Gastrooesophageal reflux disease [None]
  - Pneumonia [None]

NARRATIVE: CASE EVENT DATE: 20240411
